FAERS Safety Report 17153715 (Version 1)
Quarter: 2019Q4

REPORT INFORMATION
  Report Type: Spontaneous
  Country: US (occurrence: US)
  Receive Date: 20191213
  Receipt Date: 20191213
  Transmission Date: 20200122
  Serious: No
  Sender: FDA-Public Use
  Company Number: US-009507513-1911USA012188

PATIENT
  Age: 16 Year
  Sex: Female
  Weight: 104.5 kg

DRUGS (1)
  1. NEXPLANON [Suspect]
     Active Substance: ETONOGESTREL
     Indication: MENSTRUATION IRREGULAR
     Dosage: 1 DOSAGE FORM, LEFT ARM, 3 YEARS
     Route: 059
     Dates: start: 20190909

REACTIONS (6)
  - Device kink [Not Recovered/Not Resolved]
  - Product use in unapproved indication [Unknown]
  - Complication associated with device [Not Recovered/Not Resolved]
  - Medical device discomfort [Not Recovered/Not Resolved]
  - Fatigue [Not Recovered/Not Resolved]
  - Back pain [Not Recovered/Not Resolved]

NARRATIVE: CASE EVENT DATE: 20191106
